FAERS Safety Report 12811194 (Version 4)
Quarter: 2016Q4

REPORT INFORMATION
  Report Type: Spontaneous
  Country: US (occurrence: US)
  Receive Date: 20161005
  Receipt Date: 20161227
  Transmission Date: 20170207
  Serious: Yes (Hospitalization, Other)
  Sender: FDA-Public Use
  Company Number: US-JNJFOC-20161002384

PATIENT
  Age: 71 Year
  Sex: Female

DRUGS (40)
  1. XYREM [Suspect]
     Active Substance: SODIUM OXYBATE
     Indication: NARCOLEPSY
     Route: 048
     Dates: start: 201003, end: 2012
  2. POLYETHYLENE GLYCOL [Concomitant]
     Active Substance: POLYETHYLENE GLYCOLS
     Route: 065
     Dates: start: 201605
  3. CRESTOR [Concomitant]
     Active Substance: ROSUVASTATIN CALCIUM
     Route: 065
     Dates: start: 20151013, end: 20151013
  4. VITAMIN D3 [Concomitant]
     Active Substance: CHOLECALCIFEROL
     Route: 065
     Dates: start: 20151013
  5. METFORMIN [Concomitant]
     Active Substance: METFORMIN HYDROCHLORIDE
     Route: 065
     Dates: start: 20151012, end: 20151012
  6. TRAMADOL HYDROCHLORIDE. [Suspect]
     Active Substance: TRAMADOL HYDROCHLORIDE
     Indication: PAIN
     Route: 065
     Dates: end: 2016
  7. FOLTANX RF [Concomitant]
     Route: 065
     Dates: start: 20151013
  8. METHYLIN [Concomitant]
     Active Substance: METHYLPHENIDATE HYDROCHLORIDE
     Route: 065
     Dates: start: 20151012, end: 20151012
  9. VANDAZOLE [Concomitant]
     Active Substance: METRONIDAZOLE
     Route: 065
     Dates: start: 20151012, end: 20151012
  10. ENALAPRIL MALEATE. [Concomitant]
     Active Substance: ENALAPRIL MALEATE
     Route: 065
     Dates: start: 20151006
  11. LEVOTHYROXINE. [Concomitant]
     Active Substance: LEVOTHYROXINE
     Route: 065
     Dates: start: 20151006
  12. SIMVASTATIN. [Concomitant]
     Active Substance: SIMVASTATIN
     Route: 065
     Dates: start: 20151006
  13. FUROSEMIDE. [Concomitant]
     Active Substance: FUROSEMIDE
     Route: 065
  14. OXYCODONE HYDROCHLORIDE. [Suspect]
     Active Substance: OXYCODONE HYDROCHLORIDE
     Indication: PAIN
     Route: 065
     Dates: start: 201605, end: 201608
  15. ERY-TAB [Concomitant]
     Active Substance: ERYTHROMYCIN
     Route: 065
     Dates: start: 20151012, end: 20151012
  16. OMEPRAZOLE. [Concomitant]
     Active Substance: OMEPRAZOLE
     Route: 065
     Dates: start: 20151006
  17. DUREZOL [Concomitant]
     Active Substance: DIFLUPREDNATE
     Route: 065
     Dates: start: 20141126
  18. OFLOXACIN. [Concomitant]
     Active Substance: OFLOXACIN
     Route: 065
     Dates: start: 20141126, end: 20151013
  19. XYREM [Suspect]
     Active Substance: SODIUM OXYBATE
     Indication: NARCOLEPSY
     Route: 048
     Dates: start: 201312, end: 2016
  20. MELOXICAM. [Concomitant]
     Active Substance: MELOXICAM
     Route: 065
     Dates: start: 20151006
  21. REQUIP [Concomitant]
     Active Substance: ROPINIROLE HYDROCHLORIDE
     Route: 065
     Dates: start: 20151006
  22. MINOCYCLINE [Concomitant]
     Active Substance: MINOCYCLINE\MINOCYCLINE HYDROCHLORIDE
     Route: 065
     Dates: start: 20140325
  23. ASPIRIN. [Concomitant]
     Active Substance: ASPIRIN
     Route: 065
  24. DEXTROAMPHETAMINE. [Concomitant]
     Active Substance: DEXTROAMPHETAMINE
     Route: 065
  25. XYREM [Suspect]
     Active Substance: SODIUM OXYBATE
     Indication: NARCOLEPSY
     Route: 048
     Dates: start: 201209, end: 2013
  26. CITALOPRAM [Concomitant]
     Active Substance: CITALOPRAM HYDROBROMIDE
     Route: 065
     Dates: start: 201605
  27. SALINE [Concomitant]
     Active Substance: SODIUM CHLORIDE
     Route: 065
     Dates: start: 20151013
  28. GABAPENTIN. [Concomitant]
     Active Substance: GABAPENTIN
     Route: 065
     Dates: start: 20151006
  29. FLUTICASONE [Concomitant]
     Active Substance: FLUTICASONE\FLUTICASONE PROPIONATE
     Route: 065
     Dates: end: 201505
  30. HYDROCODONE [Suspect]
     Active Substance: HYDROCODONE
     Indication: PRODUCT USED FOR UNKNOWN INDICATION
     Route: 065
  31. ASPIRIN E.C [Concomitant]
     Active Substance: ASPIRIN
     Route: 065
  32. ASPIRIN E.C [Concomitant]
     Active Substance: ASPIRIN
     Route: 065
     Dates: start: 201605
  33. SPIRONOLACTONE. [Concomitant]
     Active Substance: SPIRONOLACTONE
     Route: 065
     Dates: start: 20151013
  34. CLINDAMYCIN PHOSPHATE. [Concomitant]
     Active Substance: CLINDAMYCIN PHOSPHATE
     Route: 065
     Dates: start: 20140325
  35. BUPROPION. [Concomitant]
     Active Substance: BUPROPION
     Route: 065
  36. FERROUS SULFATE. [Concomitant]
     Active Substance: FERROUS SULFATE
     Route: 065
  37. XYREM [Suspect]
     Active Substance: SODIUM OXYBATE
     Indication: NARCOLEPSY
     Route: 048
     Dates: start: 201002, end: 201003
  38. ATENOLOL. [Concomitant]
     Active Substance: ATENOLOL
     Route: 065
     Dates: start: 20151006
  39. TRETINOIN. [Concomitant]
     Active Substance: TRETINOIN
     Route: 065
     Dates: start: 20140325
  40. FEXOFENADINE HCL [Concomitant]
     Active Substance: FEXOFENADINE HYDROCHLORIDE
     Route: 065

REACTIONS (16)
  - Joint dislocation [Not Recovered/Not Resolved]
  - Joint injury [Not Recovered/Not Resolved]
  - Flatulence [Unknown]
  - Shoulder arthroplasty [Unknown]
  - Shoulder operation [Unknown]
  - Fall [Recovered/Resolved]
  - Constipation [Unknown]
  - Surgery [Unknown]
  - Condition aggravated [Unknown]
  - Drug ineffective [Unknown]
  - Infection [Unknown]
  - Nausea [Unknown]
  - Fall [Recovered/Resolved]
  - Hallucination [Unknown]
  - Depression [Not Recovered/Not Resolved]
  - Feeling abnormal [Unknown]

NARRATIVE: CASE EVENT DATE: 20150818
